FAERS Safety Report 24244831 (Version 2)
Quarter: 2024Q3

REPORT INFORMATION
  Report Type: Spontaneous
  Country: GB (occurrence: GB)
  Receive Date: 20240823
  Receipt Date: 20240916
  Transmission Date: 20241017
  Serious: Yes (Death, Other)
  Sender: ALEXION PHARMACEUTICALS
  Company Number: GB-AstraZeneca-CH-00687471A

PATIENT
  Age: 9 Year
  Sex: Female
  Weight: 24.9 kg

DRUGS (2)
  1. KANUMA [Suspect]
     Active Substance: SEBELIPASE ALFA
     Indication: Lysosomal acid lipase deficiency
     Dosage: 5 MILLIGRAM/KILOGRAM, QW
     Route: 042
     Dates: start: 2015
  2. KANUMA [Suspect]
     Active Substance: SEBELIPASE ALFA
     Dosage: 5 MILLIGRAM/KILOGRAM
     Route: 042
     Dates: end: 20240804

REACTIONS (4)
  - Haemophagocytic lymphohistiocytosis [Fatal]
  - Infection [Fatal]
  - Transplant failure [Fatal]
  - Multiple organ dysfunction syndrome [Fatal]

NARRATIVE: CASE EVENT DATE: 20240705
